FAERS Safety Report 6908637-2 (Version None)
Quarter: 2010Q3

REPORT INFORMATION
  Report Type: 
  Country: None (occurrence: None)
  Receive Date: 20100805
  Receipt Date: 20100728
  Transmission Date: 20110219
  Serious: Yes (Other)
  Sender: FDA-Public Use
  Company Number: US-MERCK-0901USA04049

PATIENT
  Age: 71 Year
  Sex: Female
  Weight: 62 kg

DRUGS (10)
  1. COSOPT [Suspect]
     Indication: GLAUCOMA
     Route: 047
  2. COSOPT [Suspect]
     Indication: INTRAOCULAR PRESSURE INCREASED
     Route: 047
  3. XALATAN [Suspect]
     Indication: GLAUCOMA
     Dosage: 1 DROP IN THE RIGHT EYE
     Route: 047
  4. XALATAN [Suspect]
     Indication: INTRAOCULAR PRESSURE INCREASED
     Dosage: 1 DROP IN THE RIGHT EYE
     Route: 047
  5. ALPHAGAN [Suspect]
     Indication: GLAUCOMA
     Route: 065
  6. LORAZEPAM [Concomitant]
     Route: 065
  7. CLONAZEPAM [Concomitant]
     Route: 065
  8. MIRTAZAPINE [Concomitant]
     Route: 065
  9. CITALOPRAM [Concomitant]
     Route: 065
  10. LUMIGAN [Suspect]
     Route: 065

REACTIONS (9)
  - ACCIDENTAL EXPOSURE [None]
  - CIRCUMSTANCE OR INFORMATION CAPABLE OF LEADING TO MEDICATION ERROR [None]
  - DRUG INEFFECTIVE [None]
  - DRUG INTOLERANCE [None]
  - DRUG PRESCRIBING ERROR [None]
  - INTRAOCULAR PRESSURE FLUCTUATION [None]
  - INTRAOCULAR PRESSURE INCREASED [None]
  - LEUKAEMIA [None]
  - THYROID CANCER [None]
